FAERS Safety Report 6342099-1 (Version None)
Quarter: 2009Q3

REPORT INFORMATION
  Report Type: 
  Country: None (occurrence: None)
  Receive Date: 20090904
  Receipt Date: 20090904
  Transmission Date: 20100115
  Serious: Yes (Hospitalization)
  Sender: FDA-Public Use
  Company Number: None

PATIENT
  Sex: Male
  Weight: 148 kg

DRUGS (2)
  1. CYTARABINE [Suspect]
     Dosage: 1799 MG
     Dates: end: 20090901
  2. DAUNORUBICIN HCL [Suspect]
     Dosage: 465 MG

REACTIONS (5)
  - CULTURE POSITIVE [None]
  - NEUTROPHIL COUNT DECREASED [None]
  - PLATELET COUNT DECREASED [None]
  - PNEUMONIA [None]
  - STAPHYLOCOCCAL INFECTION [None]
